FAERS Safety Report 7008807-1 (Version None)
Quarter: 2010Q3

REPORT INFORMATION
  Report Type: 
  Country: None (occurrence: None)
  Receive Date: 20100922
  Receipt Date: 20100812
  Transmission Date: 20110219
  Serious: Yes (Life-Threatening, Other)
  Sender: FDA-Public Use
  Company Number: US-BAXTER-2010BH003447

PATIENT
  Age: 49 Year
  Sex: Female
  Weight: 104 kg

DRUGS (13)
  1. HEPARIN SODIUM INJECTION [Suspect]
     Indication: THROMBECTOMY
     Route: 065
     Dates: start: 20080606, end: 20080606
  2. HEPARIN SODIUM INJECTION [Suspect]
     Indication: THROMBOLYSIS
     Route: 065
     Dates: start: 20080606, end: 20080606
  3. HEPARIN SODIUM INJECTION [Suspect]
     Indication: VASCULAR GRAFT
     Route: 065
     Dates: start: 20080606, end: 20080606
  4. HEPARIN SODIUM 5,000 UNITS IN DEXTROSE 5% [Suspect]
     Indication: THROMBOSIS PROPHYLAXIS
     Route: 041
     Dates: start: 20080606
  5. HEPARIN SODIUM [Suspect]
     Indication: THROMBECTOMY
     Route: 065
     Dates: start: 20080606, end: 20080606
  6. HEPARIN SODIUM [Suspect]
     Indication: THROMBOLYSIS
     Route: 065
     Dates: start: 20080606, end: 20080606
  7. HEPARIN SODIUM [Suspect]
     Indication: VASCULAR GRAFT
     Route: 065
     Dates: start: 20080606, end: 20080606
  8. LEVOTHYROXINE SODIUM [Concomitant]
     Indication: PRODUCT USED FOR UNKNOWN INDICATION
     Route: 065
  9. LISINOPRIL [Concomitant]
     Indication: PRODUCT USED FOR UNKNOWN INDICATION
     Route: 065
  10. GLYBURIDE AND METFORMIN HCL [Concomitant]
     Indication: PRODUCT USED FOR UNKNOWN INDICATION
     Route: 048
  11. HYDROCHLOROTHIAZIDE [Concomitant]
     Indication: PRODUCT USED FOR UNKNOWN INDICATION
     Route: 065
  12. LANSOPRAZOLE [Concomitant]
     Indication: PRODUCT USED FOR UNKNOWN INDICATION
     Route: 065
  13. NEURONTIN [Concomitant]
     Indication: PRODUCT USED FOR UNKNOWN INDICATION
     Route: 065

REACTIONS (7)
  - BLISTER [None]
  - EPISTAXIS [None]
  - GENERALISED OEDEMA [None]
  - HAEMOPTYSIS [None]
  - HYPERHIDROSIS [None]
  - RESPIRATORY FAILURE [None]
  - UPPER AIRWAY OBSTRUCTION [None]
